FAERS Safety Report 8582834-5 (Version None)
Quarter: 2012Q3

REPORT INFORMATION
  Report Type: 
  Country: None (occurrence: None)
  Receive Date: 20120809
  Receipt Date: 20120802
  Transmission Date: 20120928
  Serious: Yes (Death)
  Sender: FDA-Public Use
  Company Number: JP-ROCHE-1098356

PATIENT
  Age: 77 Year
  Sex: Male

DRUGS (3)
  1. AVASTIN [Suspect]
     Indication: NON-SMALL CELL LUNG CANCER
     Route: 041
  2. PEMETREXED DISODIUM [Concomitant]
     Indication: NON-SMALL CELL LUNG CANCER
     Dosage: DOSAGE IS UNCERTAIN.
     Route: 041
  3. CARBOPLATIN [Concomitant]
     Indication: NON-SMALL CELL LUNG CANCER
     Dosage: DOSAGE IS UNCERTAIN.
     Route: 041

REACTIONS (1)
  - INTERSTITIAL LUNG DISEASE [None]
